FAERS Safety Report 24190296 (Version 1)
Quarter: 2024Q3

REPORT INFORMATION
  Report Type: Spontaneous
  Country: ES (occurrence: ES)
  Receive Date: 20240808
  Receipt Date: 20240808
  Transmission Date: 20241016
  Serious: Yes (Life-Threatening, Hospitalization)
  Sender: RANBAXY
  Company Number: ES-SUN PHARMACEUTICAL INDUSTRIES LTD-2024RR-461631

PATIENT
  Age: 31 Year
  Sex: Female

DRUGS (3)
  1. PREGABALIN [Interacting]
     Active Substance: PREGABALIN
     Indication: Product used for unknown indication
     Dosage: 1010 MILLIGRAM, TOTAL 1
     Route: 048
     Dates: start: 20240420, end: 20240420
  2. ESLICARBAZEPINE [Interacting]
     Active Substance: ESLICARBAZEPINE
     Indication: Product used for unknown indication
     Dosage: 2040 MILLIGRAM, TOTAL 1
     Route: 048
     Dates: start: 20240420, end: 20240420
  3. DIAZEPAM [Interacting]
     Active Substance: DIAZEPAM
     Indication: Product used for unknown indication
     Dosage: 20 GRAM, TOTAL 1
     Route: 048
     Dates: start: 20240420, end: 20240420

REACTIONS (1)
  - Coma [Recovered/Resolved]

NARRATIVE: CASE EVENT DATE: 20240421
